FAERS Safety Report 7639099-8 (Version None)
Quarter: 2011Q3

REPORT INFORMATION
  Report Type: 
  Country: None (occurrence: None)
  Receive Date: 20110727
  Receipt Date: 20110717
  Transmission Date: 20111222
  Serious: Yes (Other)
  Sender: FDA-Public Use
  Company Number: PHHY2011TR64944

PATIENT
  Age: 20 Year
  Sex: Male

DRUGS (1)
  1. EXJADE [Suspect]
     Indication: THALASSAEMIA BETA
     Dosage: UNK UKN, UNK
     Dates: start: 20100101, end: 20110712

REACTIONS (1)
  - RECTAL CANCER [None]
